FAERS Safety Report 18195391 (Version 1)
Quarter: 2020Q3

REPORT INFORMATION
  Report Type: Spontaneous
  Country: GB (occurrence: GB)
  Receive Date: 20200825
  Receipt Date: 20200825
  Transmission Date: 20201103
  Serious: Yes (Hospitalization)
  Sender: FDA-Public Use
  Company Number: GB-MYLANLABS-2020M1072785

PATIENT
  Age: 59 Year
  Sex: Female

DRUGS (6)
  1. THIAMINE. [Concomitant]
     Active Substance: THIAMINE
     Dosage: 300 MILLIGRAM, QD
  2. OMEPRAZOLE. [Suspect]
     Active Substance: OMEPRAZOLE
     Indication: PRODUCT USED FOR UNKNOWN INDICATION
     Dosage: 20 MILLIGRAM, QD
  3. VITAMIN B COMPOUND STRONG [Concomitant]
     Active Substance: NIACINAMIDE\PYRIDOXINE HYDROCHLORIDE\RIBOFLAVIN\THIAMINE HYDROCHLORIDE
     Dosage: 2 DOSAGE FORM, QD
  4. PROPRANOLOL [Concomitant]
     Active Substance: PROPRANOLOL HYDROCHLORIDE
     Dosage: 80 MILLIGRAM, QD
  5. FOLIC ACID. [Concomitant]
     Active Substance: FOLIC ACID
     Dosage: 5 MILLIGRAM, QD
  6. VENSIR [Suspect]
     Active Substance: VENLAFAXINE HYDROCHLORIDE
     Indication: PRODUCT USED FOR UNKNOWN INDICATION
     Dosage: 300 MILLIGRAM, QD

REACTIONS (7)
  - Fall [Unknown]
  - Hemiparesis [Unknown]
  - Confusional state [Unknown]
  - Seizure [Unknown]
  - Hyponatraemia [Unknown]
  - Femoral neck fracture [Unknown]
  - Haemorrhagic stroke [Unknown]
